FAERS Safety Report 5573428-4 (Version None)
Quarter: 2007Q4

REPORT INFORMATION
  Report Type: 
  Country: None (occurrence: None)
  Receive Date: 20071226
  Receipt Date: 20071213
  Transmission Date: 20080405
  Serious: Yes (Other)
  Sender: FDA-Public Use
  Company Number: FI-BAYER-200718106GPV

PATIENT
  Age: 46 Year
  Sex: Female

DRUGS (7)
  1. AVELOX [Suspect]
     Indication: PULMONARY SEPSIS
     Dosage: TOTAL DAILY DOSE: 400 MG  UNIT DOSE: 400 MG
     Route: 042
     Dates: start: 20071106, end: 20071107
  2. AVELOX [Suspect]
     Dosage: TOTAL DAILY DOSE: 200 MG  UNIT DOSE: 400 MG
     Route: 042
     Dates: start: 20071108, end: 20071108
  3. NORADRENALIN [Suspect]
     Indication: CARDIOVASCULAR DISORDER
     Route: 042
  4. DOBUTAMINE HCL [Suspect]
     Indication: CARDIOVASCULAR DISORDER
     Route: 042
  5. FURESIS [Concomitant]
     Indication: DRUG USE FOR UNKNOWN INDICATION
     Route: 065
     Dates: start: 20071106
  6. ROCEPHALIN [Concomitant]
     Indication: PULMONARY SEPSIS
     Dosage: TOTAL DAILY DOSE: 4 G  UNIT DOSE: 4 G
     Route: 042
     Dates: start: 20071106
  7. SOLU-CORTEF [Concomitant]
     Indication: SEPTIC SHOCK
     Dosage: TOTAL DAILY DOSE: 300 MG  UNIT DOSE: 100 MG
     Route: 042

REACTIONS (1)
  - TORSADE DE POINTES [None]
